FAERS Safety Report 10896821 (Version 1)
Quarter: 2015Q1

REPORT INFORMATION
  Report Type: Spontaneous
  Country: US (occurrence: US)
  Receive Date: 20150309
  Receipt Date: 20150309
  Transmission Date: 20150721
  Serious: Yes (Death)
  Sender: FDA-Public Use
  Company Number: US-BANPHARM-20153687

PATIENT
  Age: 31 Year
  Sex: Male

DRUGS (10)
  1. METHADONE [Suspect]
     Active Substance: METHADONE HYDROCHLORIDE
  2. DIPHENHYDRAMINE UNKNOWN PRODUCT [Suspect]
     Active Substance: DIPHENHYDRAMINE
  3. TRAMADOL [Suspect]
     Active Substance: TRAMADOL
  4. CODEINE [Suspect]
     Active Substance: CODEINE
  5. AMPHETAMINE [Suspect]
     Active Substance: AMPHETAMINE
  6. QUININE [Suspect]
     Active Substance: QUININE
  7. HEROIN [Suspect]
     Active Substance: DIACETYLMORPHINE
  8. LAMOTRIGINE. [Suspect]
     Active Substance: LAMOTRIGINE
  9. FLUOXETINE [Suspect]
     Active Substance: FLUOXETINE\FLUOXETINE HYDROCHLORIDE
  10. CLONAZEPAM. [Suspect]
     Active Substance: CLONAZEPAM

REACTIONS (1)
  - Drug abuse [Fatal]
